FAERS Safety Report 11014502 (Version 2)
Quarter: 2015Q2

REPORT INFORMATION
  Report Type: Spontaneous
  Country: US (occurrence: US)
  Receive Date: 20150412
  Receipt Date: 20150525
  Transmission Date: 20150821
  Serious: No
  Sender: FDA-Public Use
  Company Number: US-JNJFOC-20141013612

PATIENT
  Age: 58 Year
  Sex: Male
  Weight: 94.35 kg

DRUGS (2)
  1. SOVALDI [Suspect]
     Active Substance: SOFOSBUVIR
     Indication: PRODUCT USED FOR UNKNOWN INDICATION
     Route: 065
     Dates: start: 201403
  2. OLYSIO [Suspect]
     Active Substance: SIMEPREVIR
     Indication: HEPATITIS C
     Route: 048
     Dates: start: 201403, end: 201405

REACTIONS (4)
  - Off label use [Recovered/Resolved]
  - Depression [Unknown]
  - Viral load increased [Not Recovered/Not Resolved]
  - Hepatitis C [Unknown]

NARRATIVE: CASE EVENT DATE: 2014
